FAERS Safety Report 9814624 (Version 2)
Quarter: 2014Q1

REPORT INFORMATION
  Report Type: Other
  Country: US (occurrence: US)
  Receive Date: 20140113
  Receipt Date: 20140113
  Transmission Date: 20141002
  Serious: Yes (Hospitalization)
  Sender: FDA-Public Use
  Company Number: US-ACORDA-ACO_37119_2013

PATIENT
  Sex: Male

DRUGS (2)
  1. AMPYRA [Suspect]
     Indication: PRODUCT USED FOR UNKNOWN INDICATION
     Dosage: 10 MG, BID
     Route: 048
  2. AMPYRA [Suspect]
     Dosage: 10 MG, QD
     Route: 048

REACTIONS (4)
  - Infection [Unknown]
  - Urinary tract infection [Unknown]
  - Balance disorder [Unknown]
  - Inappropriate schedule of drug administration [Unknown]
